FAERS Safety Report 11616268 (Version 1)
Quarter: 2015Q4

REPORT INFORMATION
  Report Type: Spontaneous
  Country: FR (occurrence: FR)
  Receive Date: 20151009
  Receipt Date: 20151009
  Transmission Date: 20160304
  Serious: Yes (Hospitalization)
  Sender: FDA-Public Use
  Company Number: FR-PFIZER INC-2015338439

PATIENT
  Age: 40 Year
  Sex: Female

DRUGS (2)
  1. ARGANOVA [Suspect]
     Active Substance: ARGATROBAN
     Indication: HEPARIN-INDUCED THROMBOCYTOPENIA
     Dosage: 2 MG/KG/MIN
     Route: 041
     Dates: start: 20150904, end: 20150906
  2. ORGARAN [Concomitant]
     Active Substance: DANAPAROID SODIUM
     Indication: HEPARIN-INDUCED THROMBOCYTOPENIA
     Dosage: UNK
     Dates: start: 20150903, end: 20150904

REACTIONS (3)
  - Coagulation factor V level decreased [Recovered/Resolved]
  - Blood fibrinogen abnormal [Recovered/Resolved]
  - Prothrombin level decreased [Recovered/Resolved]

NARRATIVE: CASE EVENT DATE: 20150906
